FAERS Safety Report 15881277 (Version 2)
Quarter: 2019Q1

REPORT INFORMATION
  Report Type: Report from Study
  Country: US (occurrence: US)
  Receive Date: 20190128
  Receipt Date: 20190207
  Transmission Date: 20190417
  Serious: Yes (Hospitalization)
  Sender: FDA-Public Use
  Company Number: US-ACTELION-A-US2018-183844

PATIENT
  Age: 67 Year
  Sex: Male
  Weight: 79.37 kg

DRUGS (7)
  1. VELETRI [Suspect]
     Active Substance: EPOPROSTENOL
     Dosage: 12 NG/KG, PER MIN
     Route: 042
  2. TYVASO [Concomitant]
     Active Substance: TREPROSTINIL
  3. ELIQUIS [Concomitant]
     Active Substance: APIXABAN
  4. VELETRI [Suspect]
     Active Substance: EPOPROSTENOL
     Indication: PULMONARY ARTERIAL HYPERTENSION
     Dosage: 16 NG/KG, PER MIN
     Route: 042
  5. VELETRI [Suspect]
     Active Substance: EPOPROSTENOL
     Dosage: 14 NG/KG, UNK
     Route: 042
  6. LETAIRIS [Concomitant]
     Active Substance: AMBRISENTAN
  7. VELETRI [Suspect]
     Active Substance: EPOPROSTENOL
     Dosage: 9 NG/KG, PER MIN
     Route: 042

REACTIONS (12)
  - Device leakage [Unknown]
  - Application site erythema [Unknown]
  - Rash pruritic [Unknown]
  - Catheter site discolouration [Unknown]
  - Headache [Recovering/Resolving]
  - Haematochezia [Unknown]
  - Pain in jaw [Recovering/Resolving]
  - Catheter management [Unknown]
  - Abdominal discomfort [Unknown]
  - Flushing [Recovering/Resolving]
  - Oxygen saturation decreased [Unknown]
  - Rash [Unknown]
